FAERS Safety Report 7469458-8 (Version None)
Quarter: 2011Q2

REPORT INFORMATION
  Report Type: 
  Country: None (occurrence: None)
  Receive Date: 20110429
  Receipt Date: 20110414
  Transmission Date: 20111010
  Serious: Yes (Hospitalization)
  Sender: FDA-Public Use
  Company Number: 2011040034

PATIENT
  Age: 21 Year
  Sex: Male

DRUGS (2)
  1. MESALAMINE [Suspect]
     Indication: COLITIS ULCERATIVE
  2. PREDNISOLONE [Concomitant]

REACTIONS (6)
  - HAEMOGLOBIN DECREASED [None]
  - MULTIPLE SCLEROSIS [None]
  - PLATELET COUNT INCREASED [None]
  - VENA CAVA THROMBOSIS [None]
  - PANCREATITIS ACUTE [None]
  - HEART RATE INCREASED [None]
